FAERS Safety Report 5734627-1 (Version None)
Quarter: 2008Q2

REPORT INFORMATION
  Report Type: 
  Country: None (occurrence: None)
  Receive Date: 20080430
  Receipt Date: 20080223
  Transmission Date: 20081010
  Serious: No
  Sender: FDA-Public Use
  Company Number: 2008PV034350

PATIENT
  Age: 49 Year
  Sex: Female

DRUGS (25)
  1. SYMLIN [Suspect]
     Indication: TYPE 2 DIABETES MELLITUS
     Dosage: 60 MCG;TID;SC
     Route: 058
     Dates: start: 20080222
  2. GLUCOPHAGE [Concomitant]
  3. GLUCOTROL [Concomitant]
  4. INSULIN DETEMIR [Concomitant]
  5. HUMALOG [Concomitant]
  6. JANUVIA [Concomitant]
  7. TOPROL-XL [Concomitant]
  8. ISOSORBIDE DINITRATE [Concomitant]
  9. ZETIA [Concomitant]
  10. TRICOR [Concomitant]
  11. PRAVASTATIN [Concomitant]
  12. POTASSIUM CHLORIDE [Concomitant]
  13. FELOPDIPINE [Concomitant]
  14. PLAVIX [Concomitant]
  15. NAPROXEN [Concomitant]
  16. LYRICA [Concomitant]
  17. GUAIFENEX PSE [Concomitant]
  18. BUMEX [Concomitant]
  19. PROTONIX [Concomitant]
  20. FLONASE [Concomitant]
  21. LEVOTHYROXINE SODIUM [Concomitant]
  22. AMITIZA [Concomitant]
  23. LUNESTA [Concomitant]
  24. HUMULIN R [Concomitant]
  25. BYETTA [Concomitant]

REACTIONS (6)
  - ABDOMINAL DISTENSION [None]
  - BLOOD GLUCOSE DECREASED [None]
  - BLOOD GLUCOSE INCREASED [None]
  - ERUCTATION [None]
  - FLATULENCE [None]
  - INSOMNIA [None]
